FAERS Safety Report 23699462 (Version 2)
Quarter: 2024Q3

REPORT INFORMATION
  Report Type: Report from Study
  Country: JP (occurrence: JP)
  Receive Date: 20240402
  Receipt Date: 20240920
  Transmission Date: 20241016
  Serious: Yes (Hospitalization)
  Sender: JOHNSON AND JOHNSON
  Company Number: JP-JNJFOC-20231008730

PATIENT
  Age: 67 Year
  Sex: Female

DRUGS (8)
  1. TREMFYA [Suspect]
     Active Substance: GUSELKUMAB
     Indication: Palmoplantar pustulosis
     Route: 058
     Dates: start: 20201014, end: 20211222
  2. TREMFYA [Suspect]
     Active Substance: GUSELKUMAB
     Indication: Pustulotic arthro-osteitis
     Route: 058
     Dates: start: 20220216, end: 20221118
  3. TREMFYA [Suspect]
     Active Substance: GUSELKUMAB
     Route: 058
     Dates: start: 20230217, end: 20230217
  4. TREMFYA [Suspect]
     Active Substance: GUSELKUMAB
     Route: 058
     Dates: start: 20230609
  5. CEFACLOR [Suspect]
     Active Substance: CEFACLOR
     Indication: Product used for unknown indication
     Dosage: DOSE UNKNOWN
     Route: 048
  6. BIOTIN [Concomitant]
     Active Substance: BIOTIN
     Indication: Palmoplantar pustulosis
     Route: 048
     Dates: start: 20200523, end: 20201231
  7. BIOTIN [Concomitant]
     Active Substance: BIOTIN
     Indication: Pustulotic arthro-osteitis
  8. CALONAL [Concomitant]
     Active Substance: ACETAMINOPHEN
     Indication: Product used for unknown indication
     Dosage: P.R.N
     Route: 048
     Dates: end: 20201231

REACTIONS (6)
  - Haemorrhoids [Recovered/Resolved]
  - Drug hypersensitivity [Recovered/Resolved]
  - Skin mass [Recovered/Resolved]
  - Coronavirus infection [Recovered/Resolved]
  - Nasopharyngitis [Recovered/Resolved]
  - Cellulitis [Recovered/Resolved]

NARRATIVE: CASE EVENT DATE: 20221021
